FAERS Safety Report 6715844-0 (Version None)
Quarter: 2010Q2

REPORT INFORMATION
  Report Type: 
  Country: None (occurrence: None)
  Receive Date: 20100507
  Receipt Date: 20100429
  Transmission Date: 20101027
  Serious: Yes (Other)
  Sender: FDA-Public Use
  Company Number: GB-JNJFOC-20100500582

PATIENT
  Age: 14 Year
  Sex: Female

DRUGS (1)
  1. RISPERDAL [Suspect]
     Indication: DEPRESSION
     Route: 065

REACTIONS (3)
  - DEPRESSION [None]
  - SELF INJURIOUS BEHAVIOUR [None]
  - WEIGHT INCREASED [None]
